FAERS Safety Report 6136825-4 (Version None)
Quarter: 2009Q1

REPORT INFORMATION
  Report Type: 
  Country: None (occurrence: None)
  Receive Date: 20090326
  Receipt Date: 20090326
  Transmission Date: 20090719
  Serious: Yes (Other)
  Sender: FDA-Public Use
  Company Number: None

PATIENT
  Age: 32 Year
  Sex: Male
  Weight: 102.0593 kg

DRUGS (1)
  1. CHANTIX [Suspect]
     Indication: TOBACCO ABUSE
     Dosage: 0.5 MG 1 TAB QD PO; 1 MG 1TAB BID PO
     Route: 048
     Dates: start: 20090301, end: 20090319

REACTIONS (7)
  - ANGER [None]
  - DEPRESSION [None]
  - FEAR [None]
  - FEELING ABNORMAL [None]
  - JAW DISORDER [None]
  - SENSORY DISTURBANCE [None]
  - THERAPY CESSATION [None]
